FAERS Safety Report 8806113 (Version 1)
Quarter: 2012Q4

REPORT INFORMATION
  Report Type: Report from Study
  Country: US (occurrence: US)
  Receive Date: 20120925
  Receipt Date: 20120925
  Transmission Date: 20130627
  Serious: Yes (Hospitalization)
  Sender: FDA-Public Use
  Company Number: US-ABBOTT-12P-163-0980993-00

PATIENT
  Sex: Male
  Weight: 99.43 kg

DRUGS (8)
  1. NIASPAN (COATED) [Suspect]
     Indication: BLOOD CHOLESTEROL INCREASED
     Dosage: At night
     Dates: start: 2002
  2. METOPROLOL [Concomitant]
     Indication: BLOOD CHOLESTEROL INCREASED
     Dosage: Unknown
  3. PLAVIX [Concomitant]
     Indication: PRODUCT USED FOR UNKNOWN INDICATION
     Dosage: Unknown
  4. RENEXA [Concomitant]
     Indication: PRODUCT USED FOR UNKNOWN INDICATION
     Dosage: Unknown
  5. ISOSORBIDE [Concomitant]
     Indication: PRODUCT USED FOR UNKNOWN INDICATION
     Dosage: Unknown
  6. ATORVASTATIN [Concomitant]
     Indication: PRODUCT USED FOR UNKNOWN INDICATION
     Dosage: Unknown
  7. METFORMIN [Concomitant]
     Indication: DIABETES MELLITUS
     Dosage: Unknown
  8. LIPITOR [Concomitant]
     Indication: BLOOD CHOLESTEROL INCREASED
     Dosage: Unknown

REACTIONS (2)
  - Peripheral artery stenosis [Recovered/Resolved]
  - Pain in extremity [Recovered/Resolved]
